FAERS Safety Report 20155541 (Version 1)
Quarter: 2021Q4

REPORT INFORMATION
  Report Type: Spontaneous
  Country: CA (occurrence: CA)
  Receive Date: 20211207
  Receipt Date: 20211207
  Transmission Date: 20220303
  Serious: Yes (Death)
  Sender: FDA-Public Use
  Company Number: CA-SAMSUNG BIOEPIS-SB-2021-27955

PATIENT
  Age: 36 Year
  Sex: Male
  Weight: 75 kg

DRUGS (1)
  1. INFLIXIMAB [Suspect]
     Active Substance: INFLIXIMAB
     Indication: Crohn^s disease
     Route: 042

REACTIONS (6)
  - Death [Fatal]
  - Weight increased [Fatal]
  - Inappropriate schedule of product administration [Fatal]
  - Intentional product use issue [Fatal]
  - Product use issue [Fatal]
  - Off label use [Fatal]
